FAERS Safety Report 19205655 (Version 2)
Quarter: 2021Q4

REPORT INFORMATION
  Report Type: Spontaneous
  Country: US (occurrence: US)
  Receive Date: 20210503
  Receipt Date: 20211019
  Transmission Date: 20220303
  Serious: Yes (Hospitalization)
  Sender: FDA-Public Use
  Company Number: US-FARMAPROD-202101-0115

PATIENT
  Sex: Female

DRUGS (33)
  1. OXERVATE [Suspect]
     Active Substance: CENEGERMIN-BKBJ
     Indication: Dry eye
     Route: 047
     Dates: start: 20201203, end: 202101
  2. OXERVATE [Suspect]
     Active Substance: CENEGERMIN-BKBJ
     Indication: Neurotrophic keratopathy
     Route: 047
     Dates: start: 20210325, end: 20210519
  3. OXERVATE [Suspect]
     Active Substance: CENEGERMIN-BKBJ
     Route: 047
     Dates: start: 20210520, end: 20210713
  4. OXERVATE [Suspect]
     Active Substance: CENEGERMIN-BKBJ
     Route: 047
     Dates: start: 20210716, end: 20210910
  5. OXERVATE [Suspect]
     Active Substance: CENEGERMIN-BKBJ
     Route: 047
     Dates: start: 20210911
  6. UBIQUINOL [Concomitant]
     Active Substance: UBIQUINOL
  7. BIOTIN [Concomitant]
     Active Substance: BIOTIN
  8. POTASSIUM [Concomitant]
     Active Substance: POTASSIUM
     Dosage: 595(99) MG
  9. FISH OIL [Concomitant]
     Active Substance: FISH OIL
     Dosage: 100-150 MG
  10. MAGNESIUM [Concomitant]
     Active Substance: MAGNESIUM
  11. VITAMIN D3 [Concomitant]
     Active Substance: CHOLECALCIFEROL
  12. CALCIUM\CHOLECALCIFEROL [Concomitant]
     Active Substance: CALCIUM\CHOLECALCIFEROL
     Dosage: 600 MG-500 EXTENDED RELEASE TABLET
  13. HYDROCORTISONE VALERATE [Concomitant]
     Active Substance: HYDROCORTISONE VALERATE
  14. ELIDEL [Concomitant]
     Active Substance: PIMECROLIMUS
  15. XYZAL [Concomitant]
     Active Substance: LEVOCETIRIZINE DIHYDROCHLORIDE
  16. SYSTANE (HYPROMELLOSE 2910 (4000 MPA.S)) [Concomitant]
     Active Substance: HYPROMELLOSE 2910 (4000 MPA.S)
     Dosage: 0.3%-0.4%
  17. CYCLOBENZAPRINE HYDROCHLORIDE [Concomitant]
     Active Substance: CYCLOBENZAPRINE HYDROCHLORIDE
  18. ALLEGRA D-12 HOUR [Concomitant]
     Active Substance: FEXOFENADINE HYDROCHLORIDE\PSEUDOEPHEDRINE HYDROCHLORIDE
  19. TYLENOL EXTRA STRENGTH [Concomitant]
     Active Substance: ACETAMINOPHEN
  20. PEPCID [Concomitant]
     Active Substance: FAMOTIDINE
  21. PRILOSEC OTC [Concomitant]
     Active Substance: OMEPRAZOLE MAGNESIUM
  22. NYSTATIN\TRIAMCINOLONE [Concomitant]
     Active Substance: NYSTATIN\TRIAMCINOLONE
  23. NAFTIN [Concomitant]
     Active Substance: NAFTIFINE HYDROCHLORIDE
  24. HYDROCORTISONE [Concomitant]
     Active Substance: HYDROCORTISONE
  25. PIMECROLIMUS [Concomitant]
     Active Substance: PIMECROLIMUS
  26. TACROLIMUS/PSEUDOCATALASE [Concomitant]
  27. EUCRISA [Concomitant]
     Active Substance: CRISABOROLE
  28. LIDODERM [Concomitant]
     Active Substance: LIDOCAINE
  29. TOBRADEX [Concomitant]
     Active Substance: DEXAMETHASONE\TOBRAMYCIN
     Dosage: 0.3%-0.1%
  30. LOTEMAX [Concomitant]
     Active Substance: LOTEPREDNOL ETABONATE
  31. TRIAMCINOLONE ACETONIDE [Concomitant]
     Active Substance: TRIAMCINOLONE ACETONIDE
  32. CREON [Concomitant]
     Active Substance: PANCRELIPASE AMYLASE\PANCRELIPASE LIPASE\PANCRELIPASE PROTEASE
     Dosage: 12,000-60,000-80,000 UNIT
  33. XIIDRA [Concomitant]
     Active Substance: LIFITEGRAST

REACTIONS (7)
  - Hospitalisation [Unknown]
  - Eye pain [Unknown]
  - Eyelid pain [Unknown]
  - Blepharitis [Unknown]
  - Ocular hyperaemia [Unknown]
  - Wrong technique in product usage process [Unknown]
  - Product use issue [Unknown]
